FAERS Safety Report 21454564 (Version 1)
Quarter: 2022Q4

REPORT INFORMATION
  Report Type: Spontaneous
  Country: US (occurrence: None)
  Receive Date: 20221013
  Receipt Date: 20221013
  Transmission Date: 20230112
  Serious: No
  Sender: FDA-Public Use
  Company Number: None

PATIENT
  Age: 64 Year
  Sex: Male
  Weight: 105.69 kg

DRUGS (1)
  1. HUMIRA [Suspect]
     Active Substance: ADALIMUMAB
     Indication: Psoriasis
     Dosage: INJECT 80MG (2 SYRINGES) SUBCUTANEOUSLY ON DAY 1, 40MG   (1 SYRINGE) ON DAY 8 THEN 40MG EVERY OTHER
     Route: 058
     Dates: start: 202111

REACTIONS (1)
  - Kidney infection [None]
